FAERS Safety Report 8805177 (Version 1)
Quarter: 2012Q4

REPORT INFORMATION
  Report Type: Spontaneous
  Country: US (occurrence: None)
  Receive Date: 20120918
  Receipt Date: 20120918
  Transmission Date: 20130627
  Serious: Yes (Hospitalization)
  Sender: FDA-Public Use
  Company Number: None

PATIENT
  Age: 87 Year
  Sex: Male
  Weight: 92.2 kg

DRUGS (1)
  1. GLIPIZIDE [Suspect]
     Indication: NIDDM
     Route: 048
     Dates: start: 19980220, end: 20120825

REACTIONS (2)
  - Hypoglycaemia [None]
  - Unresponsive to stimuli [None]
